FAERS Safety Report 20616957 (Version 1)
Quarter: 2022Q1

REPORT INFORMATION
  Report Type: Spontaneous
  Country: US (occurrence: US)
  Receive Date: 20220321
  Receipt Date: 20220321
  Transmission Date: 20220423
  Serious: Yes (Hospitalization)
  Sender: FDA-Public Use
  Company Number: US-RIGEL PHARMACEUTICALS, INC.-2022FOS000183

PATIENT
  Age: 58 Year
  Sex: Male

DRUGS (1)
  1. TAVALISSE [Suspect]
     Active Substance: FOSTAMATINIB
     Indication: Immune thrombocytopenia
     Dosage: 100 MG, Q12H
     Route: 048
     Dates: start: 20220305

REACTIONS (2)
  - Platelet count [Unknown]
  - Flatulence [Unknown]

NARRATIVE: CASE EVENT DATE: 20220301
